FAERS Safety Report 26093870 (Version 1)
Quarter: 2025Q4

REPORT INFORMATION
  Report Type: Report from Study
  Country: US (occurrence: US)
  Receive Date: 20251126
  Receipt Date: 20251126
  Transmission Date: 20260118
  Serious: Yes (Other)
  Sender: TAKEDA
  Company Number: US-TAKEDA-2025TUS022339

PATIENT
  Age: 51 Year
  Sex: Male

DRUGS (1)
  1. GUANFACINE HYDROCHLORIDE [Suspect]
     Active Substance: GUANFACINE HYDROCHLORIDE
     Indication: Product used for unknown indication
     Dosage: UNK

REACTIONS (5)
  - Craniocerebral injury [Unknown]
  - Drug dispensed to wrong patient [Unknown]
  - Product container seal issue [Unknown]
  - Product packaging quantity issue [Unknown]
  - Road traffic accident [Unknown]
